FAERS Safety Report 7228244-4 (Version None)
Quarter: 2011Q1

REPORT INFORMATION
  Report Type: 
  Country: None (occurrence: None)
  Receive Date: 20110114
  Receipt Date: 20110113
  Transmission Date: 20110831
  Serious: Yes (Hospitalization, Other)
  Sender: FDA-Public Use
  Company Number: CH-PFIZER INC-2011008502

PATIENT
  Age: 88 Year
  Sex: Female
  Weight: 61 kg

DRUGS (14)
  1. TOLVON [Suspect]
     Indication: DEPRESSION
     Dosage: 30 MG, 1X/DAY
     Route: 048
     Dates: start: 20100601, end: 20101024
  2. TOLVON [Suspect]
     Dosage: 15 MG, 1X/DAY
     Route: 048
     Dates: start: 20101025, end: 20101105
  3. KLACID [Suspect]
     Dosage: 500 MG, 2X/DAY
     Route: 048
     Dates: start: 20101030, end: 20101105
  4. DAFALGAN [Concomitant]
     Dosage: 4 G, UNK
     Route: 048
     Dates: end: 20101020
  5. ARICEPT [Suspect]
     Indication: DEMENTIA ALZHEIMER'S TYPE
     Dosage: 10 MG, 1X/DAY
     Route: 048
     Dates: start: 20100601, end: 20101024
  6. TOREM [Concomitant]
     Dosage: 10 MG, 1X/DAY
     Route: 048
     Dates: end: 20101021
  7. DALMADROM [Concomitant]
     Dosage: 30 MG, 1X/DAY
     Route: 048
  8. PIROXICAM [Suspect]
     Dosage: 20 MG, 1X/DAY
     Dates: start: 20100601
  9. DAFALGAN [Concomitant]
     Dosage: 3 G, 1X/DAY
     Dates: start: 20101021
  10. NEXIUM [Concomitant]
     Dosage: 40 MG, 1X/DAY
     Route: 048
     Dates: start: 20101025
  11. CLAMOXYL [Suspect]
     Dosage: 1 G, 2X/DAY
     Route: 048
     Dates: start: 20101030, end: 20101105
  12. ARICEPT [Suspect]
     Dosage: 5 MG, 1X/DAY
     Route: 048
     Dates: start: 20101025, end: 20101108
  13. EUTHYROX [Concomitant]
     Dosage: 100 UG, 1X/DAY
     Route: 048
  14. REMINYL [Concomitant]
     Dosage: 8 MG, 1X/DAY
     Dates: start: 20110107

REACTIONS (6)
  - RASH MACULO-PAPULAR [None]
  - FALL [None]
  - DRUG LEVEL INCREASED [None]
  - DRUG DEPENDENCE [None]
  - GENERAL PHYSICAL HEALTH DETERIORATION [None]
  - GASTRIC ULCER HELICOBACTER [None]
